FAERS Safety Report 15573384 (Version 1)
Quarter: 2018Q4

REPORT INFORMATION
  Report Type: Spontaneous
  Country: IT (occurrence: IT)
  Receive Date: 20181101
  Receipt Date: 20181101
  Transmission Date: 20190205
  Serious: Yes (Hospitalization)
  Sender: FDA-Public Use
  Company Number: IT-ROCHE-2208490

PATIENT
  Age: 5 Year
  Sex: Male
  Weight: 16 kg

DRUGS (6)
  1. ZARONTIN [Suspect]
     Active Substance: ETHOSUXIMIDE
     Indication: EPILEPSY
     Dosage: ON 06/OCT/2018, THE PATIENT RECEIVED MOST RECENT DOSE OF ETHOSUXIMIDE
     Route: 048
     Dates: start: 20180401
  2. THIAMINE. [Concomitant]
     Active Substance: THIAMINE
     Route: 048
  3. CARNITENE [Concomitant]
     Route: 048
  4. UBIDECARENONE [Concomitant]
     Active Substance: UBIDECARENONE
     Route: 048
  5. RIVOTRIL [Suspect]
     Active Substance: CLONAZEPAM
     Indication: EPILEPSY
     Dosage: ON 06/OCT/2018, THE PATIENT RECEIVED MOST RECENT DOSE OF CLONAZEPAM
     Route: 048
     Dates: start: 20180101
  6. DIBASE [Concomitant]
     Active Substance: CHOLECALCIFEROL
     Dosage: UNIT DOSE: 2 [DRP]
     Route: 048

REACTIONS (2)
  - Generalised tonic-clonic seizure [Unknown]
  - Drug ineffective [Unknown]

NARRATIVE: CASE EVENT DATE: 20181006
